FAERS Safety Report 7502611-3 (Version None)
Quarter: 2011Q2

REPORT INFORMATION
  Report Type: 
  Country: None (occurrence: None)
  Receive Date: 20110525
  Receipt Date: 20110512
  Transmission Date: 20111010
  Serious: Yes (Hospitalization)
  Sender: FDA-Public Use
  Company Number: PHHY2011DE32970

PATIENT
  Sex: Female
  Weight: 52 kg

DRUGS (5)
  1. ACETAMINOPHEN [Concomitant]
     Dosage: 1500 MG PER DAY
     Route: 048
     Dates: start: 20101101
  2. EXFORGE [Suspect]
     Indication: MALIGNANT HYPERTENSION
     Dosage: 1 DF, BID (VALSARTAN 80MG AND AMLODIPINE 05MG)
     Route: 048
     Dates: start: 20101001, end: 20110101
  3. NOVALGIN [Concomitant]
     Dosage: 30 DRP, TID
     Route: 048
     Dates: start: 20101101
  4. RASILEZ [Suspect]
     Indication: MALIGNANT HYPERTENSION
     Dosage: 1 DF, BID
     Route: 048
     Dates: start: 20101001, end: 20110101
  5. BUPRENORPHINE [Concomitant]
     Dosage: 1 DF/ WEEK
     Route: 062
     Dates: start: 20101201

REACTIONS (1)
  - COLITIS [None]
